FAERS Safety Report 10434349 (Version 2)
Quarter: 2014Q3

REPORT INFORMATION
  Report Type: Spontaneous
  Country: US (occurrence: US)
  Receive Date: 20140905
  Receipt Date: 20140929
  Transmission Date: 20150326
  Serious: Yes (Death, Hospitalization, Other)
  Sender: FDA-Public Use
  Company Number: US-009507513-1409USA002724

PATIENT
  Sex: Male
  Weight: 79.37 kg

DRUGS (5)
  1. SIMVASTATIN. [Concomitant]
     Active Substance: SIMVASTATIN
     Indication: BLOOD CHOLESTEROL INCREASED
     Dosage: UNK
     Dates: start: 2007, end: 2012
  2. LANTUS [Concomitant]
     Active Substance: INSULIN GLARGINE
     Indication: TYPE 2 DIABETES MELLITUS
     Dosage: UNK
     Dates: start: 2007, end: 2012
  3. AVAPRO [Concomitant]
     Active Substance: IRBESARTAN
     Indication: HYPERTENSION
     Dosage: UNK
     Dates: start: 2007, end: 2012
  4. NOVOLOG [Concomitant]
     Active Substance: INSULIN ASPART
     Indication: TYPE 2 DIABETES MELLITUS
     Dosage: UNK
     Dates: start: 2007, end: 2012
  5. JANUVIA [Suspect]
     Active Substance: SITAGLIPTIN PHOSPHATE
     Indication: TYPE 2 DIABETES MELLITUS
     Dosage: 100 MG, QD
     Route: 048
     Dates: start: 20100126, end: 20121005

REACTIONS (16)
  - Death [Fatal]
  - Renal cyst [Unknown]
  - Metastases to bone [Unknown]
  - Cholelithiasis [Unknown]
  - Metastases to lung [Unknown]
  - Small intestinal obstruction [Unknown]
  - Prostatomegaly [Unknown]
  - Pancreatic carcinoma metastatic [Unknown]
  - Metastases to peritoneum [Unknown]
  - Pancreatolithiasis [Unknown]
  - Metastases to lymph nodes [Unknown]
  - Laparoscopic surgery [Unknown]
  - Pancreatitis [Recovering/Resolving]
  - Aortic calcification [Unknown]
  - Ileus [Unknown]
  - Pneumobilia [Unknown]

NARRATIVE: CASE EVENT DATE: 2011
